FAERS Safety Report 7973887 (Version 4)
Quarter: 2013Q3

REPORT INFORMATION
  Report Type: Spontaneous
  Country: US (occurrence: US)
  Receive Date: 20110603
  Receipt Date: 20130710
  Transmission Date: 20140515
  Serious: Yes (Hospitalization, Other)
  Sender: FDA-Public Use
  Company Number: US-US-EMD SERONO, INC.-7062426

PATIENT
  Age: 46 Year
  Sex: Female

DRUGS (5)
  1. REBIF [Suspect]
     Indication: MULTIPLE SCLEROSIS
     Route: 058
     Dates: start: 20090330, end: 20120617
  2. REBIF [Suspect]
     Dates: start: 20130701
  3. HYDROCODONE [Concomitant]
     Indication: ARTHRALGIA
  4. AMITRIPTYLINE [Concomitant]
  5. GABAPENTIN [Concomitant]

REACTIONS (6)
  - Bone disorder [Recovering/Resolving]
  - Osteonecrosis [Recovering/Resolving]
  - Arthritis [Unknown]
  - Arthropathy [Recovered/Resolved]
  - Cataract [Not Recovered/Not Resolved]
  - Injection site erythema [Recovered/Resolved]
